FAERS Safety Report 7047482 (Version 3)
Quarter: 2013Q1

REPORT INFORMATION
  Report Type: Report from Study
  Country: US (occurrence: US)
  Receive Date: 20090710
  Receipt Date: 20130320
  Transmission Date: 20140127
  Serious: Yes (Hospitalization)
  Sender: FDA-Public Use
  Company Number: PHHO2009US08302

PATIENT
  Age: 39 Year
  Sex: Male
  Weight: 87 kg

DRUGS (4)
  1. ZORTRESS [Suspect]
     Indication: RENAL TRANSPLANT
     Dosage: 1.25 MG, BID
     Route: 048
     Dates: start: 20070324, end: 20090702
  2. MYFORTIC [Concomitant]
     Indication: RENAL TRANSPLANT
     Dosage: UNK
     Route: 048
     Dates: start: 20090701
  3. FLUCONAZOLE [Concomitant]
     Indication: PROPHYLAXIS
  4. BACTRIM [Concomitant]
     Indication: PROPHYLAXIS

REACTIONS (4)
  - Kidney transplant rejection [Recovering/Resolving]
  - Toxicity to various agents [Not Recovered/Not Resolved]
  - IgA nephropathy [Not Recovered/Not Resolved]
  - Drug ineffective [Not Recovered/Not Resolved]
